FAERS Safety Report 16436417 (Version 2)
Quarter: 2019Q3

REPORT INFORMATION
  Report Type: Spontaneous
  Country: US (occurrence: US)
  Receive Date: 20190614
  Receipt Date: 20190731
  Transmission Date: 20191004
  Serious: No
  Sender: FDA-Public Use
  Company Number: US-JNJFOC-20190612305

PATIENT
  Sex: Female

DRUGS (1)
  1. TREMFYA [Suspect]
     Active Substance: GUSELKUMAB
     Indication: PRODUCT USED FOR UNKNOWN INDICATION
     Dosage: !ST TREMFYA DOSE WAS ON 28/FEB/2019, 2ND TREMFYA DOSE WAS ON 13/MAR/2019
     Route: 058
     Dates: start: 20190228, end: 20190313

REACTIONS (1)
  - Dermatitis contact [Unknown]
